FAERS Safety Report 17038042 (Version 4)
Quarter: 2020Q3

REPORT INFORMATION
  Report Type: Report from Study
  Country: None (occurrence: US)
  Receive Date: 20191115
  Receipt Date: 20200701
  Transmission Date: 20201102
  Serious: Yes (Other)
  Sender: FDA-Public Use
  Company Number: US-ABBVIE-19K-163-2998642-00

PATIENT
  Age: 50 Year
  Sex: Female

DRUGS (3)
  1. HUMIRA [Suspect]
     Active Substance: ADALIMUMAB
     Dosage: CITRATE FREE
     Route: 058
     Dates: start: 2020
  2. CYMBALTA [Suspect]
     Active Substance: DULOXETINE HYDROCHLORIDE
     Indication: PRODUCT USED FOR UNKNOWN INDICATION
     Route: 065
     Dates: start: 20191106
  3. HUMIRA [Suspect]
     Active Substance: ADALIMUMAB
     Indication: ANKYLOSING SPONDYLITIS
     Dosage: CITRATE FREE
     Route: 058
     Dates: start: 20190614, end: 20200328

REACTIONS (33)
  - Loss of consciousness [Recovered/Resolved]
  - Fatigue [Not Recovered/Not Resolved]
  - General physical condition abnormal [Unknown]
  - Pain [Recovering/Resolving]
  - Nausea [Unknown]
  - Neck pain [Unknown]
  - Alopecia [Unknown]
  - Headache [Not Recovered/Not Resolved]
  - Dizziness [Recovered/Resolved]
  - Loss of personal independence in daily activities [Not Recovered/Not Resolved]
  - Musculoskeletal stiffness [Not Recovered/Not Resolved]
  - Vomiting [Unknown]
  - Joint swelling [Recovering/Resolving]
  - Back pain [Recovered/Resolved]
  - Condition aggravated [Unknown]
  - Mobility decreased [Recovering/Resolving]
  - Impaired work ability [Not Recovered/Not Resolved]
  - Joint range of motion decreased [Recovering/Resolving]
  - Headache [Recovered/Resolved]
  - Neck pain [Recovered/Resolved]
  - Joint range of motion decreased [Not Recovered/Not Resolved]
  - Musculoskeletal stiffness [Not Recovered/Not Resolved]
  - Nausea [Recovered/Resolved]
  - Discomfort [Not Recovered/Not Resolved]
  - Arthralgia [Not Recovered/Not Resolved]
  - Nasopharyngitis [Not Recovered/Not Resolved]
  - Feeling abnormal [Unknown]
  - Allergy to chemicals [Unknown]
  - Cough [Not Recovered/Not Resolved]
  - Musculoskeletal stiffness [Recovered/Resolved]
  - Joint stiffness [Unknown]
  - Neck pain [Recovered/Resolved]
  - Back pain [Not Recovered/Not Resolved]

NARRATIVE: CASE EVENT DATE: 2019
